FAERS Safety Report 18561114 (Version 1)
Quarter: 2020Q4

REPORT INFORMATION
  Report Type: Spontaneous
  Country: US (occurrence: US)
  Receive Date: 20201130
  Receipt Date: 20201130
  Transmission Date: 20210114
  Serious: Yes (Other)
  Sender: FDA-Public Use
  Company Number: US-MYLANLABS-2020M1097346

PATIENT
  Sex: Male
  Weight: 93 kg

DRUGS (9)
  1. TAFAMIDIS [Concomitant]
     Active Substance: TAFAMIDIS MEGLUMINE
     Indication: AMYLOIDOSIS
     Dosage: 61 MILLIGRAM, QD
     Dates: start: 201906
  2. ATORVASTATIN [Concomitant]
     Active Substance: ATORVASTATIN
     Indication: CARDIAC DISORDER
     Dosage: 40 MILLIGRAM, QD
  3. POTASSIUM CHLORIDE. [Concomitant]
     Active Substance: POTASSIUM CHLORIDE
     Indication: CARDIAC DISORDER
     Dosage: 2-4 PILSS
  4. FUROSEMIDE. [Suspect]
     Active Substance: FUROSEMIDE
     Indication: FLUID RETENTION
     Dosage: 40 MILLIGRAM, TID
     Route: 065
  5. FUROSEMIDE. [Suspect]
     Active Substance: FUROSEMIDE
     Indication: CARDIAC FAILURE CONGESTIVE
  6. ELIQUIS [Concomitant]
     Active Substance: APIXABAN
     Indication: ANTICOAGULANT THERAPY
     Dosage: UNK UNK, BID
  7. AMIODARONE [Concomitant]
     Active Substance: AMIODARONE
     Indication: CARDIAC DISORDER
     Dosage: 200 MILLIGRAM, QD
  8. L-THYROXINE                        /00068001/ [Concomitant]
     Active Substance: LEVOTHYROXINE
     Indication: THYROID DISORDER
     Dosage: 125 MICROGRAM, QD
  9. METOLAZONE. [Concomitant]
     Active Substance: METOLAZONE
     Indication: DIURETIC THERAPY
     Dosage: UNK, PRN

REACTIONS (4)
  - Gout [Unknown]
  - Drug ineffective [Unknown]
  - Blood potassium decreased [Unknown]
  - Dyspnoea [Unknown]
